FAERS Safety Report 6009109-2 (Version None)
Quarter: 2008Q4

REPORT INFORMATION
  Report Type: 
  Country: None (occurrence: None)
  Receive Date: 20081216
  Receipt Date: 20081201
  Transmission Date: 20090506
  Serious: Yes (Hospitalization)
  Sender: FDA-Public Use
  Company Number: A-JP2008-22939

PATIENT
  Age: 62 Year
  Sex: Female
  Weight: 44 kg

DRUGS (10)
  1. TRACLEER [Suspect]
     Indication: PULMONARY HYPERTENSION
     Dosage: 125 MG, BID, ORAL; 62.5 MG, BID, ORAL
     Route: 048
     Dates: start: 20080924, end: 20081020
  2. LANSOPRAZOLE [Concomitant]
  3. MAGNESIUM OXIDE (MAGNGESIUM OXIDE) [Concomitant]
  4. PREDNISOLONE [Concomitant]
  5. ALENDRONATE SODIUM [Concomitant]
  6. ETHYL ICOSAPENTATE (ETHYL ICOSAPENTATE) [Concomitant]
  7. FUROSEMIDE [Concomitant]
  8. SPIRONOLACTONE [Concomitant]
  9. CARDVEDIOL (CARVEDIOL) [Concomitant]
  10. SENNOSIDE (SENNOSIDE A+B CALCIUM) [Concomitant]

REACTIONS (12)
  - ALANINE AMINOTRANSFERASE INCREASED [None]
  - ASPARTATE AMINOTRANSFERASE INCREASED [None]
  - BLOOD ALKALINE PHOSPHATASE INCREASED [None]
  - HEPATIC CONGESTION [None]
  - HEPATIC FUNCTION ABNORMAL [None]
  - OEDEMA [None]
  - OEDEMA PERIPHERAL [None]
  - PLEURAL EFFUSION [None]
  - POLYARTHRITIS [None]
  - PYREXIA [None]
  - SWELLING [None]
  - TENDERNESS [None]
